FAERS Safety Report 4311044-2 (Version None)
Quarter: 2004Q1

REPORT INFORMATION
  Report Type: 
  Country: None (occurrence: None)
  Receive Date: 20040303
  Receipt Date: 20040303
  Transmission Date: 20041129
  Serious: Yes (Hospitalization)
  Sender: FDA-Public Use
  Company Number: None

PATIENT
  Age: 73 Year
  Sex: Male

DRUGS (10)
  1. PHENYTOIN [Suspect]
     Indication: CONVULSION PROPHYLAXIS
     Dosage: 100 MG TID ORAL
     Route: 048
  2. CLOPIDOGREL BISULFATE [Concomitant]
  3. SIMVASTATIN [Concomitant]
  4. HYDROCHLOROTHIAZIDE [Concomitant]
  5. DIGOXIN [Concomitant]
  6. METOPROLOL [Concomitant]
  7. AMLODIPINE [Concomitant]
  8. FERROUS SULFATE TAB [Concomitant]
  9. PHENYTOIN [Concomitant]
  10. POTASSIUM CHLORIDE [Concomitant]

REACTIONS (6)
  - CRANIAL NERVE PALSIES MULTIPLE [None]
  - DIZZINESS [None]
  - DRUG LEVEL INCREASED [None]
  - NAUSEA [None]
  - NYSTAGMUS [None]
  - TONIC CONVULSION [None]
